FAERS Safety Report 16167309 (Version 3)
Quarter: 2019Q3

REPORT INFORMATION
  Report Type: Report from Study
  Country: None (occurrence: US)
  Receive Date: 20190408
  Receipt Date: 20190719
  Transmission Date: 20191004
  Serious: Yes (Other)
  Sender: FDA-Public Use
  Company Number: US-ABBVIE-19K-163-2730241-00

PATIENT
  Sex: Male

DRUGS (1)
  1. HUMIRA [Suspect]
     Active Substance: ADALIMUMAB
     Indication: ANKYLOSING SPONDYLITIS
     Route: 058

REACTIONS (7)
  - Fall [Unknown]
  - Depression [Unknown]
  - Spinal pain [Not Recovered/Not Resolved]
  - Head injury [Unknown]
  - Spinal column injury [Unknown]
  - Back injury [Recovering/Resolving]
  - Dyspnoea [Unknown]
